FAERS Safety Report 10853529 (Version 1)
Quarter: 2015Q1

REPORT INFORMATION
  Report Type: Report from Study
  Country: US (occurrence: US)
  Receive Date: 20150223
  Receipt Date: 20150223
  Transmission Date: 20150721
  Serious: Yes (Hospitalization, Other)
  Sender: FDA-Public Use
  Company Number: US-ROCHE-1492334

PATIENT
  Age: 64 Year
  Sex: Female
  Weight: 65.83 kg

DRUGS (16)
  1. CARBOPLATIN. [Suspect]
     Active Substance: CARBOPLATIN
     Indication: OVARIAN CANCER
     Dosage: 6 AUC
     Route: 065
     Dates: start: 20140806, end: 20141103
  2. TUMS [Concomitant]
     Active Substance: CALCIUM CARBONATE
  3. VANCOMYCIN [Concomitant]
     Active Substance: VANCOMYCIN
  4. PACLITAXEL. [Suspect]
     Active Substance: PACLITAXEL
     Indication: OVARIAN CANCER
     Route: 065
     Dates: start: 20140806, end: 20141103
  5. CITRACAL + D [Concomitant]
     Active Substance: CALCIUM CITRATE\VITAMIN D
  6. PRAVACHOL [Concomitant]
     Active Substance: PRAVASTATIN SODIUM
  7. ZOSYN [Concomitant]
     Active Substance: PIPERACILLIN SODIUM\TAZOBACTAM SODIUM
  8. CARDIZEM [Concomitant]
     Active Substance: DILTIAZEM HYDROCHLORIDE
  9. BEVACIZUMAB [Suspect]
     Active Substance: BEVACIZUMAB
     Indication: OVARIAN CANCER
     Dosage: DAY 1 OF CYCLES 1 AND 2
     Route: 065
     Dates: start: 20140806, end: 20140827
  10. ATENOLOL. [Concomitant]
     Active Substance: ATENOLOL
  11. AMIODARONE [Concomitant]
     Active Substance: AMIODARONE
  12. PERCOCET [Concomitant]
     Active Substance: ACETAMINOPHEN\OXYCODONE HYDROCHLORIDE
  13. MOTRIN [Concomitant]
     Active Substance: IBUPROFEN
  14. LASIX [Concomitant]
     Active Substance: FUROSEMIDE
  15. ALEVE [Concomitant]
     Active Substance: NAPROXEN SODIUM
  16. LOPRESSOR [Concomitant]
     Active Substance: METOPROLOL TARTRATE

REACTIONS (17)
  - Hypotension [Recovered/Resolved]
  - Granulocytopenia [Recovered/Resolved]
  - Neutropenia [Unknown]
  - Decreased appetite [Recovered/Resolved]
  - Anaemia [Recovered/Resolved]
  - Hypokalaemia [Recovered/Resolved]
  - Asthenia [Recovered/Resolved]
  - Septic shock [Recovered/Resolved]
  - Myocardial infarction [Recovered/Resolved]
  - Thrombocytopenia [Recovered/Resolved]
  - Sepsis [Recovered/Resolved]
  - Acute respiratory distress syndrome [Recovered/Resolved]
  - Atrial fibrillation [Not Recovered/Not Resolved]
  - Ejection fraction decreased [Recovered/Resolved]
  - Pneumonia [Recovered/Resolved]
  - Dehydration [Recovered/Resolved]
  - Fatigue [Recovered/Resolved]

NARRATIVE: CASE EVENT DATE: 20141111
